FAERS Safety Report 18171008 (Version 1)
Quarter: 2020Q3

REPORT INFORMATION
  Report Type: Spontaneous
  Country: US (occurrence: US)
  Receive Date: 20200819
  Receipt Date: 20200819
  Transmission Date: 20201103
  Serious: Yes (Hospitalization)
  Sender: FDA-Public Use
  Company Number: US-ACTELION-A-US2020-208393

PATIENT
  Sex: Female
  Weight: 49.89 kg

DRUGS (3)
  1. OPSUMIT [Suspect]
     Active Substance: MACITENTAN
     Indication: PULMONARY ARTERIAL HYPERTENSION
     Dosage: 10 MG, QD
     Route: 048
  2. SILDENAFIL CITRATE. [Concomitant]
     Active Substance: SILDENAFIL CITRATE
  3. TREPROSTINIL. [Concomitant]
     Active Substance: TREPROSTINIL

REACTIONS (4)
  - Pyrexia [Unknown]
  - Cough [Unknown]
  - Suspected COVID-19 [Unknown]
  - Nasal congestion [Unknown]
